FAERS Safety Report 11188994 (Version 1)
Quarter: 2015Q2

REPORT INFORMATION
  Report Type: Spontaneous
  Country: US (occurrence: None)
  Receive Date: 20150612
  Receipt Date: 20150612
  Transmission Date: 20150821
  Serious: Yes (Hospitalization)
  Sender: FDA-Public Use
  Company Number: None

PATIENT
  Age: 60 Year
  Sex: Female
  Weight: 91.3 kg

DRUGS (2)
  1. CYTARABINE. [Suspect]
     Active Substance: CYTARABINE
     Dates: end: 20141029
  2. DAUNORUBICIN [Suspect]
     Active Substance: DAUNORUBICIN
     Dates: end: 20141025

REACTIONS (10)
  - Blood pressure decreased [None]
  - Haemoglobin decreased [None]
  - Haematochezia [None]
  - Hyperbilirubinaemia [None]
  - Colitis [None]
  - Febrile neutropenia [None]
  - Septic shock [None]
  - Shock [None]
  - Mental status changes [None]
  - Diarrhoea [None]

NARRATIVE: CASE EVENT DATE: 20141104
